FAERS Safety Report 9116181 (Version 3)
Quarter: 2013Q2

REPORT INFORMATION
  Report Type: Report from Study
  Country: US (occurrence: US)
  Receive Date: 20130225
  Receipt Date: 20130409
  Transmission Date: 20140414
  Serious: Yes (Hospitalization, Other)
  Sender: FDA-Public Use
  Company Number: US-ACTELION-A-US2013-79394

PATIENT
  Age: 70 Year
  Sex: Female

DRUGS (3)
  1. TRACLEER [Suspect]
     Indication: PULMONARY ARTERIAL HYPERTENSION
     Dosage: 125 MG, BID
     Route: 048
     Dates: start: 2009
  2. AVELOX [Suspect]
  3. SILDENAFIL [Concomitant]

REACTIONS (23)
  - Sinusitis [Unknown]
  - Pneumonia [Recovered/Resolved]
  - Bronchitis [Recovered/Resolved]
  - Pyrexia [Recovered/Resolved]
  - Overdose [Recovered/Resolved]
  - Abdominal discomfort [Recovered/Resolved]
  - Diarrhoea [Recovered/Resolved]
  - Mental status changes [Recovered/Resolved]
  - Memory impairment [Recovered/Resolved]
  - Abasia [Recovered/Resolved]
  - Seasonal allergy [Unknown]
  - Rhinorrhoea [Unknown]
  - Dizziness [Recovered/Resolved]
  - Fall [Unknown]
  - Syncope [Unknown]
  - Concussion [Unknown]
  - Suture insertion [Unknown]
  - Rib fracture [Unknown]
  - Cough [Recovered/Resolved]
  - Dyspnoea [Recovered/Resolved]
  - Fatigue [Recovered/Resolved]
  - Lethargy [Recovered/Resolved]
  - Confusional state [Recovered/Resolved]
